FAERS Safety Report 7401484-7 (Version None)
Quarter: 2011Q2

REPORT INFORMATION
  Report Type: 
  Country: None (occurrence: None)
  Receive Date: 20110408
  Receipt Date: 20110324
  Transmission Date: 20111010
  Serious: Yes (Hospitalization)
  Sender: FDA-Public Use
  Company Number: JP-AMGEN-JPNSP2011017514

PATIENT
  Age: 52 Year
  Sex: Male

DRUGS (14)
  1. CALTAN [Concomitant]
     Dosage: 1 G, QD
     Route: 048
  2. PLETAL [Concomitant]
     Dosage: 100 MG, BID
     Route: 048
  3. NU-LOTAN [Concomitant]
     Dosage: 50 MG, QD
     Route: 048
  4. RIVOTRIL [Concomitant]
     Dosage: 1 MG, QD
     Route: 048
  5. GLAKAY [Concomitant]
     Dosage: 45 MG, TID
     Route: 048
  6. METOPROLOL TARTRATE [Concomitant]
     Dosage: 20 MG, QD
     Route: 048
  7. OXAROL [Concomitant]
     Dosage: 5 MG, 3 TIMES/WK
     Route: 042
  8. REGPARA [Suspect]
     Indication: HYPERPARATHYROIDISM SECONDARY
     Dosage: 25 MG, QD
     Route: 048
     Dates: start: 20090601
  9. REGPARA [Suspect]
     Dosage: 50 MG, QD
     Route: 048
  10. RENAGEL                            /01459901/ [Concomitant]
     Dosage: 1.5 G, TID
     Route: 048
  11. BONALON                            /01220301/ [Concomitant]
     Dosage: 35 MG, QWK
     Route: 048
  12. PARIET [Concomitant]
     Dosage: 10 MG, QD
     Route: 048
  13. VITAMIN A [Concomitant]
     Route: 042
  14. IRRIBOW [Concomitant]
     Dosage: 5 A?G, QD
     Route: 048

REACTIONS (1)
  - PARATHYROID HAEMORRHAGE [None]
